FAERS Safety Report 20946709 (Version 1)
Quarter: 2022Q2

REPORT INFORMATION
  Report Type: Spontaneous
  Country: CO (occurrence: CO)
  Receive Date: 20220610
  Receipt Date: 20220610
  Transmission Date: 20220721
  Serious: Yes (Other)
  Sender: FDA-Public Use
  Company Number: CO-AMGEN-COLSP2022094501

PATIENT
  Age: 68 Year
  Sex: Female
  Weight: 50 kg

DRUGS (8)
  1. MVASI [Suspect]
     Active Substance: BEVACIZUMAB-AWWB
     Indication: Colon cancer
     Dosage: 250 MILLIGRAM, QD
     Route: 042
     Dates: start: 20200227
  2. NEULASTA [Suspect]
     Active Substance: PEGFILGRASTIM
     Indication: Colon cancer
     Dosage: 6 MILLIGRAM/0.6 ML, QD
     Route: 058
     Dates: start: 20200227
  3. CAPECITABINE [Concomitant]
     Active Substance: CAPECITABINE
     Indication: Colon cancer
     Dosage: UNK
  4. LEUCOVORIN CALCIUM [Concomitant]
     Active Substance: LEUCOVORIN CALCIUM
     Indication: Colon cancer
     Dosage: 596 MILLIGRAM, QD
     Route: 042
     Dates: start: 20200227
  5. FLUOROURACIL [Concomitant]
     Active Substance: FLUOROURACIL
     Indication: Colon cancer
     Dosage: 596 MILLIGRAM, QD
     Dates: start: 20220227
  6. FOSAPREPITANT [Concomitant]
     Active Substance: FOSAPREPITANT
     Indication: Colon cancer
     Dosage: UNK
     Dates: start: 20220227
  7. ONDANSETRON [Concomitant]
     Active Substance: ONDANSETRON
     Indication: Colon cancer
     Dosage: UNK
     Dates: start: 20200227
  8. DEXAMETHASONE [Concomitant]
     Active Substance: DEXAMETHASONE
     Indication: Colon cancer
     Dosage: UNK
     Dates: start: 20220227

REACTIONS (4)
  - Neuropathy peripheral [Unknown]
  - Dizziness [Not Recovered/Not Resolved]
  - Nausea [Not Recovered/Not Resolved]
  - Dysgeusia [Not Recovered/Not Resolved]

NARRATIVE: CASE EVENT DATE: 20220523
